FAERS Safety Report 14598925 (Version 2)
Quarter: 2018Q1

REPORT INFORMATION
  Report Type: Spontaneous
  Country: CA (occurrence: CA)
  Receive Date: 20180305
  Receipt Date: 20180315
  Transmission Date: 20180509
  Serious: Yes (Life-Threatening, Hospitalization, Other)
  Sender: FDA-Public Use
  Company Number: CA-ASTELLAS-2018US010851

PATIENT
  Age: 60 Year
  Sex: Female

DRUGS (3)
  1. MYCOPHENOLIC ACID. [Suspect]
     Active Substance: MYCOPHENOLIC ACID
     Indication: HEART TRANSPLANT
     Dosage: UNK UNK, UNKNOWN FREQ.
     Route: 065
  2. ANTITHYMOCYTE IMMUNOGLOBULIN [Concomitant]
     Active Substance: THYMOCYTE IMMUNE GLOBULIN NOS
     Indication: HEART TRANSPLANT
     Dosage: UNK UNK, UNKNOWN FREQ.
     Route: 065
  3. TACROLIMUS. [Suspect]
     Active Substance: TACROLIMUS
     Indication: HEART TRANSPLANT
     Dosage: UNK UNK, UNKNOWN FREQ.
     Route: 065

REACTIONS (7)
  - Pneumothorax [Unknown]
  - Transplant rejection [Unknown]
  - Purulent pericarditis [Recovered/Resolved]
  - Enterobacter infection [Recovered/Resolved]
  - Nodal arrhythmia [Unknown]
  - Treatment noncompliance [Unknown]
  - Pneumopericardium [Recovered/Resolved]
